FAERS Safety Report 8911567 (Version 1)
Quarter: 2012Q4

REPORT INFORMATION
  Report Type: 
  Country: US (occurrence: US)
  Receive Date: 20121115
  Receipt Date: 20121115
  Transmission Date: 20130627
  Serious: Yes (Other)
  Sender: FDA-Public Use
  Company Number: US-PFIZER INC-2012284983

PATIENT
  Sex: Male

DRUGS (6)
  1. TOVIAZ [Suspect]
     Indication: OVERACTIVE BLADDER
     Dosage: 8 mg, 1x/day
     Route: 048
     Dates: start: 20121112
  2. LISINOPRIL [Concomitant]
     Dosage: 10 mg, UNK
  3. CRESTOR [Concomitant]
     Dosage: 120 mg, 1x/day
  4. OMEPRAZOLE [Concomitant]
     Dosage: 20 mg, 1x/day
  5. WARFARIN [Concomitant]
     Dosage: 6 mg, UNK
  6. METOPROLOL [Concomitant]
     Dosage: 50 mg, UNK

REACTIONS (2)
  - Dysuria [Unknown]
  - Urine flow decreased [Recovering/Resolving]
